FAERS Safety Report 16659285 (Version 1)
Quarter: 2019Q3

REPORT INFORMATION
  Report Type: Spontaneous
  Country: AT (occurrence: AT)
  Receive Date: 20190802
  Receipt Date: 20190802
  Transmission Date: 20191004
  Serious: Yes (Other)
  Sender: FDA-Public Use
  Company Number: AT-AMGEN-AUTSP2019120936

PATIENT
  Age: 55 Year
  Sex: Male
  Weight: 111 kg

DRUGS (6)
  1. BERODUAL [Concomitant]
     Active Substance: FENOTEROL HYDROBROMIDE\IPRATROPIUM BROMIDE
  2. PSYCHOPAX [Concomitant]
     Active Substance: DIAZEPAM
     Dosage: UNK UNK, AS NECESSARY
  3. BUDESONID [Concomitant]
     Active Substance: BUDESONIDE
  4. BLOPRESS [Concomitant]
     Active Substance: CANDESARTAN CILEXETIL
  5. THROMBO ASS [Concomitant]
     Active Substance: ASPIRIN
  6. REPATHA [Suspect]
     Active Substance: EVOLOCUMAB
     Indication: PRODUCT USED FOR UNKNOWN INDICATION
     Dosage: 140 MILLIGRAM
     Route: 065
     Dates: start: 201907, end: 201907

REACTIONS (4)
  - Insomnia [Recovering/Resolving]
  - Diarrhoea [Recovering/Resolving]
  - Urinary retention [Recovering/Resolving]
  - Vomiting [Recovering/Resolving]

NARRATIVE: CASE EVENT DATE: 201907
